FAERS Safety Report 11155530 (Version 2)
Quarter: 2015Q2

REPORT INFORMATION
  Report Type: Spontaneous
  Country: US (occurrence: US)
  Receive Date: 20150602
  Receipt Date: 20150618
  Transmission Date: 20150821
  Serious: Yes (Other)
  Sender: FDA-Public Use
  Company Number: US-PFIZER INC-2015181781

PATIENT
  Age: 56 Year
  Sex: Female
  Weight: 73 kg

DRUGS (4)
  1. PREMARIN [Suspect]
     Active Substance: ESTROGENS, CONJUGATED
     Dosage: 0.3 MG, 1X/DAY
     Route: 048
     Dates: end: 201505
  2. PREMARIN [Suspect]
     Active Substance: ESTROGENS, CONJUGATED
     Indication: HORMONE REPLACEMENT THERAPY
     Dosage: 0.3 MG, 1X/DAY
     Route: 048
     Dates: start: 20141103
  3. FISH OIL [Concomitant]
     Active Substance: FISH OIL
     Indication: ANTIOXIDANT THERAPY
     Dosage: 1200 MG, UNK (3-4 TIMES A WEEK)
  4. VITAMIN B COMPLEX [Concomitant]
     Active Substance: CYANOCOBALAMIN\DEXPANTHENOL\NIACINAMIDE\PYRIDOXINE HYDROCHLORIDE\RIBOFLAVIN 5^-PHOSPHATE SODIUM\THIAMINE HYDROCHLORIDE\VITAMIN B COMPLEX
     Indication: ROUTINE HEALTH MAINTENANCE
     Dosage: 1 DF, ONE TABLET THREE TO FOUR TIMES A WEEK
     Route: 048

REACTIONS (10)
  - Headache [Recovered/Resolved]
  - Respiratory tract congestion [Recovered/Resolved]
  - Retinal disorder [Unknown]
  - Bronchitis [Unknown]
  - Product quality issue [Not Recovered/Not Resolved]
  - Eye infection [Not Recovered/Not Resolved]
  - Cough [Recovered/Resolved]
  - Fatigue [Recovered/Resolved]
  - Visual acuity reduced [Not Recovered/Not Resolved]
  - Wheezing [Not Recovered/Not Resolved]

NARRATIVE: CASE EVENT DATE: 20141103
